FAERS Safety Report 7378764-7 (Version None)
Quarter: 2011Q1

REPORT INFORMATION
  Report Type: 
  Country: None (occurrence: None)
  Receive Date: 20110328
  Receipt Date: 20110324
  Transmission Date: 20110831
  Serious: Yes (Death, Life-Threatening)
  Sender: FDA-Public Use
  Company Number: IT-BRISTOL-MYERS SQUIBB COMPANY-15605009

PATIENT
  Age: 42 Year
  Sex: Female

DRUGS (16)
  1. CLEXANE [Suspect]
     Indication: INFARCTION
     Dosage: 1 DF = 1 UNIT,CLEXANE 4000 IU INJ SOLN,DOSE RED ON 22FEB2011 TO 2000 IU /DAY FOR 2 DAYS
     Route: 058
  2. DIFIX [Concomitant]
  3. NEXIUM [Concomitant]
  4. COUMADIN [Suspect]
     Indication: PULMONARY EMBOLISM
     Dosage: 1 DF = 1 UNIT,INTERRUPTED ON 22FEB11
     Dates: start: 20110202
  5. CLEXANE [Suspect]
     Indication: PULMONARY EMBOLISM
     Dosage: 1 DF = 1 UNIT,CLEXANE 4000 IU INJ SOLN,DOSE RED ON 22FEB2011 TO 2000 IU /DAY FOR 2 DAYS
     Route: 058
  6. EUTIROX [Concomitant]
  7. VANCOMYCIN HCL [Concomitant]
     Dosage: VANCOCIN 500 MG POWDER FOR ORAL SOLUTION AND INFUSION
  8. LANTUS [Concomitant]
     Indication: DIABETES MELLITUS
  9. ALBUMIN (HUMAN) [Concomitant]
     Dosage: BAXTER
  10. CALCIUM CARBONATE [Concomitant]
  11. TIENAM [Concomitant]
     Dosage: TIENAM 500 MG + 500 MG POWDER FOR INFUSION SOLUTION
  12. COUMADIN [Suspect]
     Indication: INFARCTION
     Dosage: 1 DF = 1 UNIT,INTERRUPTED ON 22FEB11
     Dates: start: 20110202
  13. HUMALOG [Concomitant]
  14. AZTREONAM [Concomitant]
  15. LASIX [Concomitant]
  16. CONTRAMAL [Concomitant]

REACTIONS (2)
  - HAEMOTHORAX [None]
  - RESPIRATORY FAILURE [None]
